FAERS Safety Report 6381369-8 (Version None)
Quarter: 2009Q3

REPORT INFORMATION
  Report Type: 
  Country: None (occurrence: None)
  Receive Date: 20090929
  Receipt Date: 20090916
  Transmission Date: 20100115
  Serious: Yes (Other)
  Sender: FDA-Public Use
  Company Number: IT-GENENTECH-290864

PATIENT
  Sex: Female

DRUGS (5)
  1. BEVACIZUMAB [Suspect]
     Indication: BREAST CANCER
     Dosage: 580 MG, Q2W
     Route: 042
     Dates: start: 20090714, end: 20090915
  2. PACLITAXEL [Suspect]
     Indication: BREAST CANCER
     Dosage: 130 MG, 1/WEEK
     Route: 042
     Dates: start: 20090714, end: 20090915
  3. OMEPRAZEN [Concomitant]
     Indication: DRUG USE FOR UNKNOWN INDICATION
     Dosage: UNK
     Dates: start: 20090401
  4. XANAX [Concomitant]
     Indication: DRUG USE FOR UNKNOWN INDICATION
     Dosage: UNK
  5. CIPROFLAXACIN [Concomitant]
     Indication: DRUG USE FOR UNKNOWN INDICATION
     Dosage: UNK

REACTIONS (1)
  - RETINOPATHY HYPERTENSIVE [None]
